FAERS Safety Report 7587943-5 (Version None)
Quarter: 2011Q3

REPORT INFORMATION
  Report Type: 
  Country: None (occurrence: None)
  Receive Date: 20110705
  Receipt Date: 20110629
  Transmission Date: 20111222
  Serious: No
  Sender: FDA-Public Use
  Company Number: US-PFIZER INC-2011145757

PATIENT
  Sex: Female
  Weight: 56.236 kg

DRUGS (2)
  1. ORTHO EVRA [Concomitant]
     Indication: CONTRACEPTION
     Dosage: UNK
  2. PRISTIQ [Suspect]
     Indication: ANXIETY
     Dosage: 50 MG, DAILY
     Route: 048

REACTIONS (1)
  - DRUG SCREEN FALSE POSITIVE [None]
